FAERS Safety Report 4738173-3 (Version None)
Quarter: 2005Q3

REPORT INFORMATION
  Report Type: 
  Country: None (occurrence: None)
  Receive Date: 20050802
  Receipt Date: 20050719
  Transmission Date: 20060218
  Serious: Yes (Life-Threatening)
  Sender: FDA-Public Use
  Company Number: 2005BH000367

PATIENT
  Age: 40 Year
  Sex: Male
  Weight: 95 kg

DRUGS (3)
  1. ADVATE (OCTOCOG ALFA) [Suspect]
     Indication: HAEMOPHILIA
     Dosage: 4000 UNITS; AS NEEDED; IV
     Route: 042
     Dates: start: 20050107, end: 20050107
  2. PERINDOPRIL [Concomitant]
  3. DOXAZOSIN [Concomitant]

REACTIONS (3)
  - ANAPHYLACTIC REACTION [None]
  - DIZZINESS [None]
  - PARAESTHESIA [None]
